FAERS Safety Report 9586371 (Version 1)
Quarter: 2013Q4

REPORT INFORMATION
  Report Type: Spontaneous
  Country: US (occurrence: US)
  Receive Date: 20131003
  Receipt Date: 20131003
  Transmission Date: 20140711
  Serious: Yes (Other)
  Sender: FDA-Public Use
  Company Number: US-ELI_LILLY_AND_COMPANY-US201309008249

PATIENT
  Age: 77 Year
  Sex: Female

DRUGS (3)
  1. EVISTA [Suspect]
     Indication: OSTEOPOROSIS
     Dosage: UNK
  2. VYTORIN [Concomitant]
  3. NOVOLOG [Concomitant]

REACTIONS (3)
  - Myocardial infarction [Unknown]
  - Lip and/or oral cavity cancer [Unknown]
  - Thrombosis [Unknown]
